FAERS Safety Report 7464147-8 (Version None)
Quarter: 2011Q2

REPORT INFORMATION
  Report Type: 
  Country: None (occurrence: None)
  Receive Date: 20110506
  Receipt Date: 20090716
  Transmission Date: 20111010
  Serious: Yes (Hospitalization, Other)
  Sender: FDA-Public Use
  Company Number: DE-GENENTECH-318105

PATIENT
  Age: 76 Year
  Sex: Male

DRUGS (1)
  1. LUCENTIS [Suspect]
     Indication: AGE-RELATED MACULAR DEGENERATION
     Route: 031

REACTIONS (9)
  - EYE HAEMORRHAGE [None]
  - PERIPHERAL VASCULAR DISORDER [None]
  - CARDIAC DISORDER [None]
  - LISTLESS [None]
  - ARTHROPATHY [None]
  - RETINAL SCAR [None]
  - DIABETES MELLITUS [None]
  - EYE DISCHARGE [None]
  - EYE INFLAMMATION [None]
